FAERS Safety Report 9973705 (Version 1)
Quarter: 2014Q1

REPORT INFORMATION
  Report Type: Spontaneous
  Country: BE (occurrence: BE)
  Receive Date: 20140306
  Receipt Date: 20140306
  Transmission Date: 20141002
  Serious: Yes (Hospitalization)
  Sender: FDA-Public Use
  Company Number: BE-BAYER-2014-031929

PATIENT
  Sex: 0

DRUGS (1)
  1. AVELOX [Suspect]

REACTIONS (1)
  - Renal disorder [None]
